FAERS Safety Report 8153481-4 (Version None)
Quarter: 2012Q1

REPORT INFORMATION
  Report Type: 
  Country: None (occurrence: None)
  Receive Date: 20120221
  Receipt Date: 20120209
  Transmission Date: 20120608
  Serious: Yes (Other)
  Sender: FDA-Public Use
  Company Number: JP-ROCHE-781545

PATIENT

DRUGS (5)
  1. AVASTIN [Suspect]
     Indication: COLORECTAL CANCER METASTATIC
     Dosage: 2-7 COURSES.
     Route: 065
  2. OXALIPLATIN [Suspect]
     Indication: COLORECTAL CANCER METASTATIC
     Dosage: 1-8 COURSES.
     Route: 065
  3. FLUOROURACIL [Suspect]
     Dosage: CONTINUOUS INFUSION FOR 46 HOURS. 1-8 COURSES.
     Route: 042
  4. LEUCOVORIN CALCIUM [Suspect]
     Indication: COLORECTAL CANCER METASTATIC
     Dosage: 1-8 COURSES
     Route: 065
  5. FLUOROURACIL [Suspect]
     Indication: COLORECTAL CANCER METASTATIC
     Dosage: BOLUS
     Route: 042

REACTIONS (7)
  - EMBOLISM [None]
  - CEREBRAL INFARCTION [None]
  - ANAEMIA [None]
  - NEUTROPENIA [None]
  - LEUKOPENIA [None]
  - PERIPHERAL SENSORY NEUROPATHY [None]
  - RENAL FAILURE [None]
